FAERS Safety Report 8712885 (Version 6)
Quarter: 2012Q4

REPORT INFORMATION
  Report Type: 
  Country: AU (occurrence: AU)
  Receive Date: 20120808
  Receipt Date: 20121226
  Transmission Date: 20130627
  Serious: Yes (Life-Threatening, Hospitalization, Other)
  Sender: FDA-Public Use
  Company Number: PHHY2012AU026374

PATIENT
  Age: 25 Year
  Sex: Male
  Weight: 109 kg

DRUGS (24)
  1. CLOZARIL [Suspect]
     Indication: SCHIZOPHRENIA, PARANOID TYPE
     Dosage: 325 mg
     Route: 048
     Dates: start: 20040810
  2. CLOZARIL [Suspect]
     Dosage: 350 mg, QD
     Route: 048
     Dates: start: 20040811, end: 200707
  3. CLOZARIL [Suspect]
     Dosage: 275 mg, UNK
     Route: 048
     Dates: start: 20120212
  4. CLOZARIL [Suspect]
     Dosage: 300 mg, UNK
     Route: 048
  5. CLOZARIL [Suspect]
     Dosage: 375 mg, UNK
     Route: 048
     Dates: start: 201203, end: 20120312
  6. CLOZARIL [Suspect]
     Dosage: 350 mg, daily (100 mg mane and 250 mg nocte)
     Dates: start: 20120912
  7. ALODORM [Concomitant]
     Dosage: 10 mg, QD
  8. EFFEXOR [Concomitant]
     Dosage: UNK UKN, UNK
  9. SEROQUEL [Concomitant]
     Indication: PSYCHOTIC DISORDER
     Dosage: 200 mg, UNK
     Route: 048
  10. SEROQUEL [Concomitant]
     Dosage: 150 mg, QD
     Route: 048
  11. OMEPRAZOLE [Concomitant]
     Dosage: 20 mg, QD
     Route: 048
     Dates: start: 201202
  12. CLOPINE [Concomitant]
     Dosage: UNK UKN, UNK
  13. VENLAFAXINE SR [Concomitant]
     Dosage: 150 mg, mane
     Route: 048
  14. QUETIAPINE [Concomitant]
     Dosage: 200 mg, nocte
  15. NITRAZEPAM [Concomitant]
     Indication: INSOMNIA
     Dosage: 10 mg, UNK
     Route: 048
     Dates: start: 20120223
  16. MULTIVITAMIN [Concomitant]
     Dosage: 1 UKN, mane
     Route: 048
  17. DIAZEPAM [Concomitant]
     Indication: ANXIETY
     Dosage: 20 mg, QD
     Route: 048
  18. OLANZAPINE [Concomitant]
     Indication: PSYCHOTIC DISORDER
     Dosage: 5 mg, Q4H, PRN
  19. ZYPREXA [Concomitant]
     Dosage: UNK UKN, UNK
  20. LORAZEPAM [Concomitant]
     Dosage: 1 mg, BID
  21. LORAZEPAM [Concomitant]
     Dosage: 2 mg (1-2 mg), Q2H, PRN
  22. ASPIRIN [Concomitant]
     Dosage: 100 mg, mane
  23. TEMAZEPAM [Concomitant]
     Dosage: 10 mg, nocte PRN
  24. TEMAZEPAM [Concomitant]
     Dosage: 20 mg, nocte PRN

REACTIONS (31)
  - Suicide attempt [Recovered/Resolved with Sequelae]
  - Viral myocarditis [Recovering/Resolving]
  - Pyrexia [Recovered/Resolved]
  - Dyspnoea [Recovered/Resolved]
  - Chest discomfort [Recovered/Resolved]
  - Myalgia [Unknown]
  - Heart rate increased [Unknown]
  - Feeling cold [Unknown]
  - Troponin T increased [Unknown]
  - Blood creatine phosphokinase increased [Unknown]
  - Troponin I increased [Unknown]
  - Myoglobin blood increased [Unknown]
  - C-reactive protein increased [Unknown]
  - Decreased appetite [Recovered/Resolved]
  - Fatigue [Recovered/Resolved]
  - Malaise [Recovered/Resolved]
  - Chest pain [Recovered/Resolved]
  - Tremor [Unknown]
  - Nausea [Unknown]
  - Injury [Unknown]
  - Head injury [Unknown]
  - Mental impairment [Unknown]
  - Hallucination, auditory [Unknown]
  - Aggression [Unknown]
  - Affective disorder [Unknown]
  - Tachyarrhythmia [Recovered/Resolved]
  - Sinus tachycardia [Unknown]
  - Electrocardiogram abnormal [Unknown]
  - Electrocardiogram QT prolonged [Unknown]
  - Tenderness [Unknown]
  - White blood cell count increased [Unknown]
